FAERS Safety Report 21121064 (Version 1)
Quarter: 2022Q3

REPORT INFORMATION
  Report Type: Spontaneous
  Country: US (occurrence: None)
  Receive Date: 20220722
  Receipt Date: 20220722
  Transmission Date: 20221026
  Serious: No
  Sender: FDA-Public Use
  Company Number: None

PATIENT
  Age: 43 Year
  Sex: Male

DRUGS (3)
  1. HUMIRA [Suspect]
     Active Substance: ADALIMUMAB
     Indication: Colitis ulcerative
     Dosage: OTHER FREQUENCY : 40MG EVERY 14 DAYS;?
     Route: 058
     Dates: start: 20211216, end: 20220718
  2. AZATHIOPRINE [Concomitant]
     Active Substance: AZATHIOPRINE
     Dates: start: 20220426
  3. MESALAMINE [Concomitant]
     Active Substance: MESALAMINE
     Dates: start: 20210326

REACTIONS (1)
  - Drug ineffective [None]

NARRATIVE: CASE EVENT DATE: 20220718
